FAERS Safety Report 9603398 (Version 2)
Quarter: 2013Q4

REPORT INFORMATION
  Report Type: Spontaneous
  Country: US (occurrence: US)
  Receive Date: 20131007
  Receipt Date: 20131101
  Transmission Date: 20140711
  Serious: Yes (Hospitalization)
  Sender: FDA-Public Use
  Company Number: US-TEVA-436462USA

PATIENT
  Age: 42 Year
  Sex: Female
  Weight: 88.53 kg

DRUGS (4)
  1. COPAXONE [Suspect]
     Indication: RELAPSING-REMITTING MULTIPLE SCLEROSIS
     Dosage: 20 MILLIGRAM DAILY;
     Route: 058
     Dates: start: 201309, end: 201309
  2. SYNTHROID [Concomitant]
     Indication: HYPOTHYROIDISM
  3. AMITRIPTYLINE [Concomitant]
  4. MIRTAZAPINE [Concomitant]

REACTIONS (1)
  - Visual field defect [Not Recovered/Not Resolved]
